FAERS Safety Report 7680102-7 (Version None)
Quarter: 2011Q3

REPORT INFORMATION
  Report Type: 
  Country: None (occurrence: None)
  Receive Date: 20110812
  Receipt Date: 20110808
  Transmission Date: 20111222
  Serious: Yes (Other)
  Sender: FDA-Public Use
  Company Number: US-PFIZER INC-2009184426

PATIENT
  Sex: Female
  Weight: 99.7 kg

DRUGS (9)
  1. LYRICA [Suspect]
     Indication: NEUROPATHY PERIPHERAL
     Dosage: 300MG AT NIGHT, 150MG IN MORNING
     Route: 048
     Dates: start: 20090101
  2. ACIPHEX [Concomitant]
     Dosage: UNK
  3. TRAZODONE [Concomitant]
     Dosage: UNK
  4. LYRICA [Suspect]
     Indication: FIBROMYALGIA
  5. LYRICA [Suspect]
     Indication: BACK PAIN
  6. NEURONTIN [Suspect]
     Indication: NEUROPATHY PERIPHERAL
     Dosage: 2400 MG, 3X/DAY
  7. NEURONTIN [Suspect]
     Dosage: 900 MG, 3X/DAY
     Dates: end: 20090101
  8. DURAGESIC-100 [Concomitant]
     Dosage: UNK
     Route: 062
  9. PROMETHAZINE [Concomitant]
     Dosage: UNK

REACTIONS (4)
  - VISION BLURRED [None]
  - GASTRIC BYPASS [None]
  - WITHDRAWAL SYNDROME [None]
  - WEIGHT INCREASED [None]
